FAERS Safety Report 7866689-X (Version None)
Quarter: 2011Q4

REPORT INFORMATION
  Report Type: 
  Country: None (occurrence: None)
  Receive Date: 20111028
  Receipt Date: 20110729
  Transmission Date: 20120403
  Serious: No
  Sender: FDA-Public Use
  Company Number: US-GLAXOSMITHKLINE-A0939123A

PATIENT
  Age: 77 Year
  Sex: Male

DRUGS (19)
  1. ATENOLOL [Concomitant]
  2. MULTI-VITAMIN [Concomitant]
  3. VITAMIN E [Concomitant]
  4. LIPITOR [Concomitant]
  5. ADVAIR DISKUS 100/50 [Suspect]
     Indication: INTERSTITIAL LUNG DISEASE
     Dosage: 1PUFF TWICE PER DAY
     Route: 055
     Dates: start: 20110101
  6. ASCORBIC ACID [Concomitant]
  7. VITAMIN D [Concomitant]
  8. ZINC [Concomitant]
  9. FUROSEMIDE [Concomitant]
  10. OMEPRAZOLE [Concomitant]
  11. LISINOPRIL [Concomitant]
  12. PLAVIX [Concomitant]
  13. POTASSIUM CHLORIDE [Concomitant]
  14. CALCIUM CARBONATE [Concomitant]
  15. FINASTERIDE [Concomitant]
  16. UNKNOWN MEDICATION [Concomitant]
  17. TRAMADOL HCL [Concomitant]
  18. ASPIRIN [Concomitant]
  19. MAGNESIUM [Concomitant]

REACTIONS (1)
  - CANDIDIASIS [None]
